FAERS Safety Report 24066826 (Version 1)
Quarter: 2024Q3

REPORT INFORMATION
  Report Type: Spontaneous
  Country: ES (occurrence: ES)
  Receive Date: 20240709
  Receipt Date: 20240709
  Transmission Date: 20241017
  Serious: Yes (Other)
  Sender: BAYER
  Company Number: ES-BAYER-2024A095888

PATIENT
  Age: 84 Year
  Sex: Male

DRUGS (4)
  1. NUBEQA [Suspect]
     Active Substance: DAROLUTAMIDE
     Indication: Prostate cancer
     Dosage: 600 MG, BID (2 AFTER BREAKFAST AND 2 AT NIGHT)
     Dates: start: 2022
  2. NUBEQA [Suspect]
     Active Substance: DAROLUTAMIDE
     Indication: Prostate cancer
     Dosage: 2 TABLET A DAY
  3. EUCERIN [Concomitant]
     Active Substance: ENSULIZOLE\EUCERIN\OCTINOXATE\OCTISALATE\TITANIUM DIOXIDE\ZINC OXIDE
  4. MONTMORILLONITE [Concomitant]
     Active Substance: MONTMORILLONITE

REACTIONS (2)
  - Cerebrovascular accident [Recovering/Resolving]
  - Rash papular [None]

NARRATIVE: CASE EVENT DATE: 20231106
